FAERS Safety Report 9523917 (Version 1)
Quarter: 2013Q3

REPORT INFORMATION
  Report Type: Spontaneous
  Country: US (occurrence: None)
  Receive Date: 20130912
  Receipt Date: 20130912
  Transmission Date: 20140515
  Serious: Yes (Life-Threatening, Hospitalization)
  Sender: FDA-Public Use
  Company Number: None

PATIENT
  Sex: Female
  Weight: 150.7 kg

DRUGS (1)
  1. REMODULIN [Suspect]
     Indication: PULMONARY HYPERTENSION
     Route: 042
     Dates: start: 200807

REACTIONS (6)
  - Fatigue [None]
  - Dyspnoea [None]
  - Sepsis [None]
  - Catheter culture positive [None]
  - Pseudomonas test positive [None]
  - General physical health deterioration [None]
